FAERS Safety Report 18401619 (Version 3)
Quarter: 2023Q2

REPORT INFORMATION
  Report Type: Report from Study
  Country: AR (occurrence: AR)
  Receive Date: 20201019
  Receipt Date: 20230418
  Transmission Date: 20230722
  Serious: Yes (Other)
  Sender: FDA-Public Use
  Company Number: AR-NOVARTISPH-NVSC2020AR279941

PATIENT
  Sex: Female

DRUGS (2)
  1. OMNITROPE [Suspect]
     Active Substance: SOMATROPIN
     Indication: Turner^s syndrome
     Dosage: 0.9 MG, QD
     Route: 058
     Dates: start: 20190409
  2. OMNITROPE [Suspect]
     Active Substance: SOMATROPIN
     Dosage: 1.3 MG, QD
     Route: 058

REACTIONS (8)
  - Lymphopenia [Unknown]
  - Cardiac disorder [Unknown]
  - Kidney enlargement [Unknown]
  - Weight gain poor [Unknown]
  - Decreased immune responsiveness [Unknown]
  - Blood glucose increased [Unknown]
  - Renal disorder [Unknown]
  - Gastrooesophageal reflux disease [Unknown]
